FAERS Safety Report 4509876-0 (Version None)
Quarter: 2004Q4

REPORT INFORMATION
  Report Type: 
  Country: None (occurrence: None)
  Receive Date: 20041124
  Receipt Date: 20041004
  Transmission Date: 20050328
  Serious: Yes (Life-Threatening, Hospitalization)
  Sender: FDA-Public Use
  Company Number: DE-BRISTOL-MYERS SQUIBB COMPANY-12721973

PATIENT
  Age: 40 Year
  Sex: Female

DRUGS (5)
  1. ABILIFY [Suspect]
     Indication: SCHIZOAFFECTIVE DISORDER
     Route: 048
     Dates: start: 20040726, end: 20040817
  2. LAMOTRIGINE [Concomitant]
     Dosage: INC ON 19-AUG-2004 TO 50 MG IN MORNING AND 75 MG IN THE EVENING.
     Route: 048
  3. SOLIAN [Concomitant]
     Dates: start: 20040819
  4. HALDOL [Concomitant]
     Dosage: INCREASED TO 5 MG 4 TIMES DAILY, THEN DISCONTINUED ON 19-AUG-2004
     Route: 048
     Dates: start: 20040818, end: 20040819
  5. DIAZEPAM [Concomitant]
     Dosage: INC TO 10 MG 4 TIMES DAILY
     Route: 048
     Dates: start: 20040818

REACTIONS (11)
  - AGGRESSION [None]
  - COGNITIVE DISORDER [None]
  - CONDITION AGGRAVATED [None]
  - HALLUCINATIONS, MIXED [None]
  - INTENTIONAL SELF-INJURY [None]
  - MAJOR DEPRESSION [None]
  - MEMORY IMPAIRMENT [None]
  - RESTLESSNESS [None]
  - SCHIZOAFFECTIVE DISORDER [None]
  - SUICIDE ATTEMPT [None]
  - THERMAL BURN [None]
